FAERS Safety Report 16878875 (Version 1)
Quarter: 2019Q4

REPORT INFORMATION
  Report Type: Spontaneous
  Country: US (occurrence: US)
  Receive Date: 20191002
  Receipt Date: 20191002
  Transmission Date: 20200122
  Serious: Yes (Hospitalization)
  Sender: FDA-Public Use
  Company Number: US-NEXGEN PHARMA, INC.-2075225

PATIENT
  Age: 39 Year
  Sex: Male

DRUGS (1)
  1. CHENODAL [Suspect]
     Active Substance: CHENODIOL
     Indication: LIPID METABOLISM DISORDER
     Route: 048
     Dates: start: 20091218, end: 20190508

REACTIONS (9)
  - Pyrexia [None]
  - Hepatic enzyme increased [None]
  - Pneumonia [Unknown]
  - Chills [Unknown]
  - Tremor [None]
  - Asthenia [None]
  - Cough [None]
  - Neurological symptom [None]
  - Fatigue [None]
